FAERS Safety Report 13608154 (Version 2)
Quarter: 2017Q2

REPORT INFORMATION
  Report Type: Report from Study
  Country: PR (occurrence: PR)
  Receive Date: 20170602
  Receipt Date: 20170602
  Transmission Date: 20170830
  Serious: Yes (Hospitalization)
  Sender: FDA-Public Use
  Company Number: PR-PFIZER INC-2017236941

PATIENT
  Age: 39 Year
  Sex: Female

DRUGS (4)
  1. FOLIC ACID. [Concomitant]
     Active Substance: FOLIC ACID
     Indication: SUPPLEMENTATION THERAPY
     Dosage: 1 MG, DAILY
     Route: 048
     Dates: start: 2016
  2. LEVAQUIN [Suspect]
     Active Substance: LEVOFLOXACIN
     Dosage: UNK
     Dates: start: 2015
  3. LEVAQUIN [Suspect]
     Active Substance: LEVOFLOXACIN
     Dosage: UNK
     Dates: start: 201703
  4. NEURONTIN [Suspect]
     Active Substance: GABAPENTIN
     Indication: FIBROMYALGIA
     Dosage: 300 MG, DAILY
     Route: 048
     Dates: start: 201609

REACTIONS (16)
  - Urticaria [Recovered/Resolved]
  - Asphyxia [Recovered/Resolved]
  - Pulmonary mass [Unknown]
  - Ankylosing spondylitis [Not Recovered/Not Resolved]
  - Memory impairment [Not Recovered/Not Resolved]
  - Eye inflammation [Not Recovered/Not Resolved]
  - Hypersensitivity [Recovered/Resolved]
  - Headache [Recovered/Resolved]
  - Gastrointestinal hypomotility [Recovered/Resolved]
  - Anaemia [Not Recovered/Not Resolved]
  - Palpitations [Recovered/Resolved]
  - Pruritus allergic [Recovered/Resolved]
  - Lower respiratory tract infection bacterial [Not Recovered/Not Resolved]
  - Nausea [Recovered/Resolved]
  - Dizziness [Recovered/Resolved]
  - Ocular hyperaemia [Not Recovered/Not Resolved]

NARRATIVE: CASE EVENT DATE: 2016
